FAERS Safety Report 18322817 (Version 1)
Quarter: 2020Q3

REPORT INFORMATION
  Report Type: Spontaneous
  Country: DE (occurrence: DE)
  Receive Date: 20200929
  Receipt Date: 20200929
  Transmission Date: 20201103
  Serious: Yes (Hospitalization)
  Sender: FDA-Public Use
  Company Number: DE-TEVA-2020-DE-1199182

PATIENT
  Age: 69 Year
  Sex: Female

DRUGS (3)
  1. TRAMADOL. [Suspect]
     Active Substance: TRAMADOL
     Dosage: 150 MILLIGRAM DAILY; 50 MG, 1?1?1?0; ALTERNATING WITH METAMIZOLE
     Route: 065
  2. PANTOPRAZOL [Concomitant]
     Active Substance: PANTOPRAZOLE SODIUM
     Dosage: 40 MILLIGRAM DAILY; 1?0?0?0
  3. METAMIZOLE [Suspect]
     Active Substance: METAMIZOLE
     Dosage: 1500 MILLIGRAM DAILY; 500 MG, 1?1?1?0, ALTERNATING WITH TRAMADOL
     Route: 065

REACTIONS (5)
  - Abdominal pain upper [Unknown]
  - Chest pain [Unknown]
  - Gastric mucosa erythema [Unknown]
  - Back pain [Unknown]
  - Gastrooesophageal reflux disease [Unknown]

NARRATIVE: CASE EVENT DATE: 20191201
